FAERS Safety Report 19901862 (Version 1)
Quarter: 2021Q3

REPORT INFORMATION
  Report Type: Spontaneous
  Country: US (occurrence: US)
  Receive Date: 20210929
  Receipt Date: 20210929
  Transmission Date: 20211014
  Serious: Yes (Death, Other)
  Sender: FDA-Public Use
  Company Number: US-AMGEN-USASP2021147236

PATIENT
  Age: 66 Year
  Sex: Female

DRUGS (8)
  1. BEVACIZUMAB. [Suspect]
     Active Substance: BEVACIZUMAB
     Indication: HEPATOCELLULAR CARCINOMA
     Dosage: UNK
     Route: 065
  2. FOLFOX [Concomitant]
     Active Substance: FLUOROURACIL\LEUCOVORIN CALCIUM\OXALIPLATIN
     Indication: HEPATOCELLULAR CARCINOMA
  3. OCTREOTIDE. [Concomitant]
     Active Substance: OCTREOTIDE
     Indication: NEUROENDOCRINE CARCINOMA
  4. NIVOLUMAB [Concomitant]
     Active Substance: NIVOLUMAB
     Indication: NEUROENDOCRINE CARCINOMA
  5. BEVACIZUMAB. [Suspect]
     Active Substance: BEVACIZUMAB
     Indication: NEUROENDOCRINE CARCINOMA
  6. NIVOLUMAB [Concomitant]
     Active Substance: NIVOLUMAB
     Indication: HEPATOCELLULAR CARCINOMA
  7. FOLFOX [Concomitant]
     Active Substance: FLUOROURACIL\LEUCOVORIN CALCIUM\OXALIPLATIN
     Indication: NEUROENDOCRINE CARCINOMA
  8. OCTREOTIDE. [Concomitant]
     Active Substance: OCTREOTIDE
     Indication: HEPATOCELLULAR CARCINOMA

REACTIONS (3)
  - Hepatocellular carcinoma [Fatal]
  - Off label use [Unknown]
  - Neuroendocrine tumour [Fatal]
